FAERS Safety Report 4981625-1 (Version None)
Quarter: 2006Q2

REPORT INFORMATION
  Report Type: 
  Country: None (occurrence: None)
  Receive Date: 20060425
  Receipt Date: 20060414
  Transmission Date: 20061013
  Serious: Yes (Hospitalization)
  Sender: FDA-Public Use
  Company Number: FR-ABBOTT-06P-056-0330930-00

PATIENT
  Age: 33 Year
  Sex: Male

DRUGS (5)
  1. DEPAKENE [Suspect]
     Indication: EPILEPSY
     Dates: start: 19930101, end: 20060305
  2. DEPAKENE [Suspect]
     Route: 048
     Dates: start: 20060306, end: 20060310
  3. PYRIMETHAMINE TAB [Suspect]
     Indication: TOXOPLASMOSIS
     Route: 048
     Dates: start: 20060224, end: 20060310
  4. SULFADIAZINE [Suspect]
     Indication: TOXOPLASMOSIS
     Route: 048
     Dates: start: 20060224, end: 20060313
  5. CIDOFOVIR [Concomitant]
     Indication: DRUG USE FOR UNKNOWN INDICATION
     Dates: start: 20060215

REACTIONS (5)
  - AGRANULOCYTOSIS [None]
  - DEPRESSED LEVEL OF CONSCIOUSNESS [None]
  - FOLATE DEFICIENCY [None]
  - OXYGEN SATURATION DECREASED [None]
  - THROMBOCYTOPENIA [None]
